FAERS Safety Report 13320497 (Version 1)
Quarter: 2017Q1

REPORT INFORMATION
  Report Type: Spontaneous
  Country: CA (occurrence: CA)
  Receive Date: 20170310
  Receipt Date: 20170310
  Transmission Date: 20170428
  Serious: Yes (Hospitalization, Other)
  Sender: FDA-Public Use
  Company Number: CA-GLAXOSMITHKLINE-CA2017GSK031622

PATIENT
  Age: 17 Year
  Sex: Male

DRUGS (1)
  1. AVAMYS [Suspect]
     Active Substance: FLUTICASONE FUROATE
     Indication: SEASONAL ALLERGY
     Dosage: UNK
     Route: 045
     Dates: start: 20170213

REACTIONS (3)
  - Erythema multiforme [Recovering/Resolving]
  - Skin reaction [Recovering/Resolving]
  - Purulence [Recovering/Resolving]

NARRATIVE: CASE EVENT DATE: 201702
